FAERS Safety Report 23539294 (Version 1)
Quarter: 2024Q1

REPORT INFORMATION
  Report Type: Spontaneous
  Country: US (occurrence: US)
  Receive Date: 20240219
  Receipt Date: 20240219
  Transmission Date: 20240410
  Serious: No
  Sender: FDA-Public Use
  Company Number: US-CTI BIOPHARMA-2023US04397

PATIENT

DRUGS (3)
  1. VONJO [Suspect]
     Active Substance: PACRITINIB
     Indication: Myelofibrosis
     Dosage: 200 MG, BID
     Route: 048
  2. VIAGRA [Concomitant]
     Active Substance: SILDENAFIL CITRATE
  3. VALSARTAN [Concomitant]
     Active Substance: VALSARTAN

REACTIONS (4)
  - Hepatomegaly [Unknown]
  - Splenomegaly [Unknown]
  - Product dose omission issue [Unknown]
  - Memory impairment [Unknown]
